FAERS Safety Report 7576850-X (Version None)
Quarter: 2011Q2

REPORT INFORMATION
  Report Type: 
  Country: None (occurrence: None)
  Receive Date: 20110628
  Receipt Date: 20080930
  Transmission Date: 20111010
  Serious: Yes (Death)
  Sender: FDA-Public Use
  Company Number: US-BAYER-200834911NA

PATIENT
  Age: 64 Year
  Sex: Male
  Weight: 107.3 kg

DRUGS (17)
  1. FENTANYL [Concomitant]
     Dosage: 1100MCG TOTAL INFUSED
     Route: 042
     Dates: start: 20051207, end: 20051207
  2. PANCURONIUM [Concomitant]
     Dosage: 20 MG INFUSED
     Route: 042
     Dates: start: 20051207, end: 20051207
  3. NEO-SYNEPHRINE (UNSPECIFIED FORMULATION) [Concomitant]
     Dosage: 200 MG
     Route: 042
     Dates: start: 20051207, end: 20051207
  4. TRASYLOL [Suspect]
     Dosage: 50 CC/HR INFUSION
     Route: 042
     Dates: start: 20051207, end: 20051207
  5. PROZAC [Concomitant]
     Dosage: 20 MG, QD EVERY MORNING FOR LONG TERM USE
     Route: 048
  6. FLOMAX [Concomitant]
     Dosage: 0.4 MG, QD FOR LONG TERM USE
     Route: 048
  7. LORAZEPAM [Concomitant]
     Dosage: 0.5 MG, QD AT BEDTIME FOR LONG TERM USE
     Route: 048
  8. ACETYLSALICYLIC ACID SRT [Concomitant]
     Dosage: 81 MG, QD FOR LONG TERM USE
     Route: 048
  9. SOLU-MEDROL [Concomitant]
     Dosage: 3 G, INFUSED
     Route: 042
     Dates: start: 20051207, end: 20051207
  10. SYNTHROID [Concomitant]
     Dosage: 75 MCG/24HR, QD FOR LONG TERM USE
     Route: 048
  11. DILANTIN [Concomitant]
     Dosage: 1 G, INFUSED
     Route: 042
     Dates: start: 20051207, end: 20051207
  12. SUCCINYLCHOLINE CHLORIDE [Concomitant]
     Dosage: 200 MG, INFUSED
     Route: 042
     Dates: start: 20051207, end: 20051207
  13. FRESH FROZEN PLASMA [Concomitant]
     Dosage: 4 U, ONCE
     Route: 042
     Dates: start: 20051207, end: 20051207
  14. TRASYLOL [Suspect]
     Indication: AORTIC DISSECTION
     Dosage: 200 ML PUMP PRIME
     Route: 042
     Dates: start: 20051207, end: 20051207
  15. CELEXA [Concomitant]
     Dosage: 80 MG, QD, EVERY MORNING FOR LONG TERM USE
     Route: 048
  16. LIPITOR [Concomitant]
     Dosage: 10 MG, QD FOR LONG TERM USE
     Route: 048
  17. PLATELETS [Concomitant]
     Dosage: 2 U, ONCE
     Route: 042
     Dates: start: 20051207, end: 20051207

REACTIONS (14)
  - PULMONARY OEDEMA [None]
  - LOSS OF CONSCIOUSNESS [None]
  - BRADYCARDIA [None]
  - UNEVALUABLE EVENT [None]
  - AORTIC DISSECTION [None]
  - ANHEDONIA [None]
  - BLOOD PRESSURE IMMEASURABLE [None]
  - RENAL FAILURE ACUTE [None]
  - RENAL FAILURE [None]
  - VENTRICULAR ARRHYTHMIA [None]
  - INJURY [None]
  - MEDIASTINAL HAEMATOMA [None]
  - HYPOKALAEMIA [None]
  - POST PROCEDURAL COMPLICATION [None]
